FAERS Safety Report 21155792 (Version 3)
Quarter: 2022Q4

REPORT INFORMATION
  Report Type: Spontaneous
  Country: PT (occurrence: PT)
  Receive Date: 20220801
  Receipt Date: 20221123
  Transmission Date: 20230113
  Serious: Yes (Other)
  Sender: FDA-Public Use
  Company Number: PT-NOVARTISPH-NVSC2022PT172014

PATIENT
  Age: 30 Year
  Sex: Female

DRUGS (6)
  1. RISPERIDONE [Suspect]
     Active Substance: RISPERIDONE
     Indication: Psychotic disorder
     Dosage: 6 MILLIGRAM, QD
     Route: 048
     Dates: start: 20200512, end: 20200603
  2. ARIPIPRAZOLE [Suspect]
     Active Substance: ARIPIPRAZOLE
     Indication: Psychotic disorder
     Dosage: 30 MG, QD
     Route: 048
     Dates: start: 20200619, end: 20200807
  3. OLANZAPINE [Suspect]
     Active Substance: OLANZAPINE
     Indication: Psychotic disorder
     Dosage: UP TO 20 MG, QD
     Route: 048
     Dates: start: 202005, end: 20200522
  4. FOLIC ACID [Concomitant]
     Active Substance: FOLIC ACID
     Indication: Folate deficiency
     Dosage: 5 MG, QD
     Route: 048
     Dates: start: 20200512
  5. HALOPERIDOL DECANOATE [Concomitant]
     Active Substance: HALOPERIDOL DECANOATE
     Indication: Product used for unknown indication
     Dosage: 50 MG, QMO (50 MILLIGRAM, MONTHLY)
     Route: 030
  6. HALOPERIDOL [Concomitant]
     Active Substance: HALOPERIDOL
     Indication: Product used for unknown indication
     Dosage: 5 MG
     Route: 065

REACTIONS (13)
  - Hallucination, auditory [Recovered/Resolved]
  - Delirium [Recovered/Resolved]
  - Respiratory distress [Unknown]
  - Drug dependence [Recovered/Resolved]
  - Shock [Recovered/Resolved]
  - Extrapyramidal disorder [Recovered/Resolved]
  - Salivary hypersecretion [Recovered/Resolved]
  - Psychomotor retardation [Recovered/Resolved]
  - Psychomotor hyperactivity [Unknown]
  - Persecutory delusion [Unknown]
  - Behaviour disorder [Recovering/Resolving]
  - Drooling [Unknown]
  - Drug ineffective [Recovered/Resolved]
